FAERS Safety Report 13064334 (Version 1)
Quarter: 2016Q4

REPORT INFORMATION
  Report Type: Spontaneous
  Country: US (occurrence: US)
  Receive Date: 20161224
  Receipt Date: 20161224
  Transmission Date: 20170207
  Serious: Yes (Hospitalization)
  Sender: FDA-Public Use
  Company Number: None

PATIENT
  Age: 45 Year
  Sex: Female
  Weight: 67.5 kg

DRUGS (1)
  1. ZOLOFT [Suspect]
     Active Substance: SERTRALINE HYDROCHLORIDE
     Indication: DEPRESSION
     Dosage: ?          QUANTITY:1 TABLET(S);?
     Route: 048
     Dates: start: 20150928, end: 20160810

REACTIONS (6)
  - Urinary tract infection [None]
  - Mania [None]
  - Influenza [None]
  - Pneumonia [None]
  - Meningitis viral [None]
  - Septic shock [None]

NARRATIVE: CASE EVENT DATE: 20160811
